FAERS Safety Report 5856164-6 (Version None)
Quarter: 2008Q3

REPORT INFORMATION
  Report Type: 
  Country: None (occurrence: None)
  Receive Date: 20080825
  Receipt Date: 20080821
  Transmission Date: 20090109
  Serious: Yes (Death, Hospitalization)
  Sender: FDA-Public Use
  Company Number: A0699086A

PATIENT
  Age: 51 Year
  Sex: Male
  Weight: 97.7 kg

DRUGS (4)
  1. AVANDIA [Suspect]
     Dosage: 4MG PER DAY
     Route: 048
     Dates: start: 20020731, end: 20051222
  2. GLUCOPHAGE [Concomitant]
     Dates: start: 20030101
  3. COREG [Concomitant]
     Dates: start: 20010101, end: 20050101
  4. HYDROCHLOROTHIAZIDE [Concomitant]
     Dates: start: 20010101, end: 20030701

REACTIONS (4)
  - INJURY [None]
  - MYOCARDIAL INFARCTION [None]
  - PAIN [None]
  - SUDDEN CARDIAC DEATH [None]
